FAERS Safety Report 6925464-0 (Version None)
Quarter: 2010Q3

REPORT INFORMATION
  Report Type: 
  Country: None (occurrence: None)
  Receive Date: 20100810
  Receipt Date: 20100804
  Transmission Date: 20110219
  Serious: Yes (Death, Hospitalization)
  Sender: FDA-Public Use
  Company Number: 2010SP042348

PATIENT
  Age: 40 Year
  Sex: Male

DRUGS (5)
  1. TEMODAL [Suspect]
     Indication: GLIOBLASTOMA
     Dosage: 50 MG/M2
     Dates: start: 20060824, end: 20060927
  2. TEMODAL [Suspect]
     Indication: GLIOBLASTOMA
     Dosage: 50 MG/M2
     Dates: start: 20061005
  3. INDOMETHACIN [Suspect]
     Indication: GLIOBLASTOMA
     Dosage: 25 MG; BID;
     Dates: start: 20060824, end: 20060927
  4. TROPISETRON [Concomitant]
  5. PANTOPRAZOLE SODIUM [Concomitant]

REACTIONS (4)
  - GASTROENTERITIS [None]
  - RENAL FAILURE ACUTE [None]
  - SEPSIS [None]
  - SUBILEUS [None]
